FAERS Safety Report 25895948 (Version 1)
Quarter: 2025Q4

REPORT INFORMATION
  Report Type: Spontaneous
  Country: US (occurrence: None)
  Receive Date: 20251007
  Receipt Date: 20251007
  Transmission Date: 20260118
  Serious: No
  Sender: FDA-CTU
  Company Number: None

PATIENT
  Age: 69 Year
  Sex: Male

DRUGS (1)
  1. JAKAFI [Suspect]
     Active Substance: RUXOLITINIB
     Indication: Essential thrombocythaemia
     Dosage: FREQUENCY : DAILY;?
     Route: 048
     Dates: start: 20250912

REACTIONS (2)
  - Product label issue [None]
  - Product dose omission in error [None]

NARRATIVE: CASE EVENT DATE: 20250921
